FAERS Safety Report 16164268 (Version 2)
Quarter: 2019Q2

REPORT INFORMATION
  Report Type: Spontaneous
  Country: US (occurrence: US)
  Receive Date: 20190405
  Receipt Date: 20190405
  Transmission Date: 20190711
  Serious: Yes (Hospitalization, Other)
  Sender: FDA-Public Use
  Company Number: US-BAYER-2019-062341

PATIENT
  Age: 74 Year
  Sex: Male

DRUGS (1)
  1. STIVARGA [Suspect]
     Active Substance: REGORAFENIB
     Indication: COLORECTAL CANCER
     Dosage: 80 MG, QD (FOR 21 DAYS AND OFF FOR 7 DAYS)
     Dates: start: 20190225, end: 2019

REACTIONS (5)
  - Platelet count decreased [Not Recovered/Not Resolved]
  - Rash [None]
  - Off label use [None]
  - Immune thrombocytopenic purpura [Not Recovered/Not Resolved]
  - Renal failure [None]

NARRATIVE: CASE EVENT DATE: 20190319
